FAERS Safety Report 21707077 (Version 1)
Quarter: 2022Q4

REPORT INFORMATION
  Report Type: Spontaneous
  Country: PL (occurrence: PL)
  Receive Date: 20221209
  Receipt Date: 20221209
  Transmission Date: 20230112
  Serious: Yes (Hospitalization, Other)
  Sender: FDA-Public Use
  Company Number: PL-002147023-NVSC2022PL280784

PATIENT

DRUGS (4)
  1. RUXOLITINIB [Suspect]
     Active Substance: RUXOLITINIB
     Indication: Myelofibrosis
     Dosage: 20 MG, BID (2X/ DAY, 49 CYCLES)
     Route: 065
     Dates: start: 201705, end: 202105
  2. RUXOLITINIB [Suspect]
     Active Substance: RUXOLITINIB
     Dosage: 10 MG, BID (2X/ DAY, 2 CYCLES)
     Route: 065
     Dates: start: 202105, end: 202106
  3. RUXOLITINIB [Suspect]
     Active Substance: RUXOLITINIB
     Dosage: 15 MG, BID (2X/ DAY, 16 CYCLES)
     Route: 065
     Dates: start: 202106, end: 202209
  4. PREDNISONE [Concomitant]
     Active Substance: PREDNISONE
     Indication: Product used for unknown indication
     Dosage: 30 MG, QD (IN 30 MG DAILY DOSE)
     Route: 065
     Dates: start: 201803, end: 201809

REACTIONS (11)
  - Acute kidney injury [Unknown]
  - Pneumonia [Unknown]
  - Second primary malignancy [Not Recovered/Not Resolved]
  - Squamous cell carcinoma of skin [Not Recovered/Not Resolved]
  - Asthenia [Unknown]
  - Glomerular filtration rate abnormal [Recovering/Resolving]
  - Hypotension [Unknown]
  - Decreased appetite [Unknown]
  - Platelet count decreased [Unknown]
  - Anaemia [Recovered/Resolved]
  - Condition aggravated [Unknown]

NARRATIVE: CASE EVENT DATE: 20170701
